FAERS Safety Report 4553157-6 (Version None)
Quarter: 2005Q1

REPORT INFORMATION
  Report Type: 
  Country: None (occurrence: None)
  Receive Date: 20050114
  Receipt Date: 20050110
  Transmission Date: 20050727
  Serious: Yes (Other)
  Sender: FDA-Public Use
  Company Number: GB-GLAXOSMITHKLINE-B0363909A

PATIENT
  Sex: Female

DRUGS (1)
  1. AVANDIA [Suspect]
     Route: 065
     Dates: start: 20041220, end: 20050103

REACTIONS (2)
  - VISUAL ACUITY REDUCED [None]
  - VISUAL DISTURBANCE [None]
